FAERS Safety Report 9441937 (Version 1)
Quarter: 2013Q3

REPORT INFORMATION
  Report Type: Spontaneous
  Country: FR (occurrence: FR)
  Receive Date: 20130801
  Receipt Date: 20130801
  Transmission Date: 20140515
  Serious: Yes (Hospitalization)
  Sender: FDA-Public Use
  Company Number: AXC-2013-000335

PATIENT
  Age: 73 Year
  Sex: Female

DRUGS (7)
  1. URSODEOXYCHOLIC ACID [Suspect]
     Route: 048
  2. DOLIPRANE [Suspect]
     Indication: PRODUCT USED FOR UNKNOWN INDICATION
     Route: 048
     Dates: start: 20130428
  3. ALDACTONE [Suspect]
     Route: 048
     Dates: start: 201302
  4. SEROPLEX [Suspect]
     Route: 048
     Dates: end: 201306
  5. NOVOMIX [Suspect]
     Route: 058
  6. PREVISCAN (FLUINDIONE) [Concomitant]
  7. INNOHEP (TINZAPARIN SODIUM) [Concomitant]

REACTIONS (6)
  - Agranulocytosis [None]
  - Neutrophil count decreased [None]
  - White blood cell count decreased [None]
  - Ascites [None]
  - Oedema [None]
  - Myelodysplastic syndrome [None]
